FAERS Safety Report 6867052-0 (Version None)
Quarter: 2010Q3

REPORT INFORMATION
  Report Type: 
  Country: None (occurrence: None)
  Receive Date: 20100722
  Receipt Date: 20100715
  Transmission Date: 20110219
  Serious: Yes (Hospitalization)
  Sender: FDA-Public Use
  Company Number: A0711709B

PATIENT
  Age: 85 Year
  Sex: Male
  Weight: 88.5 kg

DRUGS (2)
  1. DUTASTERIDE [Suspect]
     Indication: PROSTATE CANCER
     Dosage: 3.5MG PER DAY
     Route: 048
     Dates: start: 20070627
  2. CASODEX [Suspect]
     Indication: PROSTATE CANCER
     Dosage: 50MG PER DAY
     Route: 048
     Dates: start: 20070627

REACTIONS (1)
  - CEREBROVASCULAR ACCIDENT [None]
